FAERS Safety Report 8603251-5 (Version None)
Quarter: 2012Q3

REPORT INFORMATION
  Report Type: 
  Country: None (occurrence: None)
  Receive Date: 20120817
  Receipt Date: 20120808
  Transmission Date: 20120928
  Serious: Yes (Hospitalization)
  Sender: FDA-Public Use
  Company Number: US-ACTELION-A-NJ2012-70099

PATIENT
  Age: 59 Year
  Sex: Female

DRUGS (2)
  1. COUMADIN [Suspect]
  2. TRACLEER [Suspect]
     Indication: PULMONARY ARTERIAL HYPERTENSION
     Dosage: UNK
     Route: 048
     Dates: start: 20020507

REACTIONS (2)
  - ANTICOAGULATION DRUG LEVEL ABOVE THERAPEUTIC [None]
  - THYROID FUNCTION TEST ABNORMAL [None]
